FAERS Safety Report 25796656 (Version 2)
Quarter: 2025Q3

REPORT INFORMATION
  Report Type: Spontaneous
  Country: US (occurrence: US)
  Receive Date: 20250912
  Receipt Date: 20250930
  Transmission Date: 20251021
  Serious: No
  Sender: SANOFI AVENTIS
  Company Number: US-SA-2025SA271634

PATIENT
  Age: 23 Year
  Sex: Female

DRUGS (2)
  1. DUPIXENT [Suspect]
     Active Substance: DUPILUMAB
     Indication: Neurodermatitis
     Dosage: 300 MG, QOW
     Route: 058
     Dates: start: 202507, end: 20250906
  2. DUPIXENT [Suspect]
     Active Substance: DUPILUMAB
     Dosage: 300 MG, QOW
     Route: 058
     Dates: start: 20250920

REACTIONS (10)
  - Pyrexia [Unknown]
  - Streptococcal infection [Not Recovered/Not Resolved]
  - Abnormal sensation in eye [Unknown]
  - Eye irritation [Recovering/Resolving]
  - Condition aggravated [Recovering/Resolving]
  - Eyelid irritation [Recovering/Resolving]
  - Condition aggravated [Recovering/Resolving]
  - Infectious mononucleosis [Recovering/Resolving]
  - Dry eye [Recovering/Resolving]
  - Neurodermatitis [Not Recovered/Not Resolved]

NARRATIVE: CASE EVENT DATE: 20250101
